FAERS Safety Report 24272118 (Version 1)
Quarter: 2024Q3

REPORT INFORMATION
  Report Type: Report from Study
  Country: BR (occurrence: BR)
  Receive Date: 20240902
  Receipt Date: 20240902
  Transmission Date: 20241016
  Serious: Yes (Other)
  Sender: Unknown Manufacturer
  Company Number: BR-AstraZeneca-2024-278336

PATIENT

DRUGS (6)
  1. METOPROLOL SUCCINATE [Suspect]
     Active Substance: METOPROLOL SUCCINATE
     Indication: Hypertension
     Dosage: 50.0MG UNKNOWN
     Route: 048
     Dates: start: 2008
  2. METOPROLOL SUCCINATE [Suspect]
     Active Substance: METOPROLOL SUCCINATE
     Indication: Cardiac disorder
     Dosage: 25.0MG UNKNOWN
     Route: 048
  3. GLICLAZIDE [Concomitant]
     Active Substance: GLICLAZIDE
     Indication: Product used for unknown indication
     Dosage: UNK
  4. METFORMIN [Concomitant]
     Active Substance: METFORMIN HYDROCHLORIDE
     Indication: Product used for unknown indication
     Dosage: UNK
  5. DIOVAN [Concomitant]
     Active Substance: VALSARTAN
     Indication: Product used for unknown indication
     Dosage: UNK
  6. GINKGO [Concomitant]
     Active Substance: GINKGO
     Indication: Labyrinthitis
     Dosage: UNK

REACTIONS (8)
  - Effusion [Recovered/Resolved]
  - Diabetes mellitus [Not Recovered/Not Resolved]
  - Haemorrhage [Unknown]
  - Bradykinesia [Unknown]
  - Tremor [Unknown]
  - Bradyphrenia [Not Recovered/Not Resolved]
  - Fatigue [Unknown]
  - Malaise [Unknown]

NARRATIVE: CASE EVENT DATE: 20110101
